FAERS Safety Report 7101436-0 (Version None)
Quarter: 2010Q4

REPORT INFORMATION
  Report Type: 
  Country: None (occurrence: None)
  Receive Date: 20101115
  Receipt Date: 20101108
  Transmission Date: 20110411
  Serious: No
  Sender: FDA-Public Use
  Company Number: US-PFIZER INC-2010143148

PATIENT
  Sex: Female
  Weight: 91 kg

DRUGS (2)
  1. SPIRONOLACTONE + HYDROCHLOROTHIAZIDE [Suspect]
     Indication: BLOOD PRESSURE ABNORMAL
     Dosage: 1 DF, 1X/DAY
     Route: 048
     Dates: end: 20101108
  2. ATENOLOL [Suspect]
     Dosage: UNK
     Dates: end: 20090101

REACTIONS (5)
  - BLOOD TRIGLYCERIDES INCREASED [None]
  - ECZEMA [None]
  - PSORIASIS [None]
  - SKIN DISORDER [None]
  - VITAMIN D DECREASED [None]
